FAERS Safety Report 11267010 (Version 1)
Quarter: 2015Q3

REPORT INFORMATION
  Report Type: Spontaneous
  Country: US (occurrence: US)
  Receive Date: 20150713
  Receipt Date: 20150713
  Transmission Date: 20151125
  Serious: No
  Sender: FDA-Public Use
  Company Number: US-BANPHARM-20143268

PATIENT
  Age: 51 Year
  Sex: Male
  Weight: 104.33 kg

DRUGS (7)
  1. SEROQUEL [Concomitant]
     Active Substance: QUETIAPINE FUMARATE
     Dosage: 350 MG,
  2. VITAMIN B [Concomitant]
     Active Substance: VITAMIN B
  3. VITAMIN E [Concomitant]
     Active Substance: .ALPHA.-TOCOPHEROL
  4. DEPAKOTE [Concomitant]
     Active Substance: DIVALPROEX SODIUM
  5. AMANTADINE HYDROCHLORIDE CAPSULES 100 MG [Suspect]
     Active Substance: AMANTADINE HYDROCHLORIDE
     Indication: TARDIVE DYSKINESIA
     Dosage: 100 MG, Q72H,
     Dates: start: 201412
  6. AMANTADINE HYDROCHLORIDE CAPSULES 100 MG [Suspect]
     Active Substance: AMANTADINE HYDROCHLORIDE
     Indication: TARDIVE DYSKINESIA
     Dosage: 100 MG; 2X/DAY,
     Dates: start: 201310, end: 201412
  7. AMANTADINE HYDROCHLORIDE CAPSULES 100 MG [Suspect]
     Active Substance: AMANTADINE HYDROCHLORIDE
     Indication: TARDIVE DYSKINESIA
     Dosage: 100 MG; 1X/DAY,
     Dates: start: 201412

REACTIONS (11)
  - Abdominal discomfort [Not Recovered/Not Resolved]
  - Anger [Recovering/Resolving]
  - Feeling abnormal [Recovering/Resolving]
  - Communication disorder [Recovering/Resolving]
  - Withdrawal syndrome [Not Recovered/Not Resolved]
  - Agitation [Recovering/Resolving]
  - Hostility [Recovering/Resolving]
  - Insomnia [Not Recovered/Not Resolved]
  - Tardive dyskinesia [Recovering/Resolving]
  - Disturbance in attention [Recovering/Resolving]
  - Diarrhoea [Not Recovered/Not Resolved]

NARRATIVE: CASE EVENT DATE: 2014
